FAERS Safety Report 11758977 (Version 1)
Quarter: 2015Q4

REPORT INFORMATION
  Report Type: Spontaneous
  Country: US (occurrence: None)
  Receive Date: 20151119
  Receipt Date: 20151119
  Transmission Date: 20160304
  Serious: Yes (Other)
  Sender: FDA-Public Use
  Company Number: None

PATIENT
  Age: 7 Year
  Sex: Female
  Weight: 23.4 kg

DRUGS (5)
  1. HUMIRA [Concomitant]
     Active Substance: ADALIMUMAB
  2. FOLIC ACID. [Concomitant]
     Active Substance: FOLIC ACID
  3. ZYRTEC [Concomitant]
     Active Substance: CETIRIZINE HYDROCHLORIDE
  4. FLONASE [Concomitant]
     Active Substance: FLUTICASONE PROPIONATE
  5. METHOTREXATE SODIUM FOR INJECTION [Suspect]
     Active Substance: METHOTREXATE SODIUM
     Indication: JUVENILE IDIOPATHIC ARTHRITIS
     Dosage: 25MG/1ML ONCE WEEKLY SUBCUTANEOUS INJECTION
     Route: 058
     Dates: start: 20100804

REACTIONS (3)
  - Vomiting [None]
  - Muscle rigidity [None]
  - Pyrexia [None]

NARRATIVE: CASE EVENT DATE: 20151113
